FAERS Safety Report 4989932-3 (Version None)
Quarter: 2006Q2

REPORT INFORMATION
  Report Type: 
  Country: None (occurrence: None)
  Receive Date: 20060427
  Receipt Date: 20060418
  Transmission Date: 20061013
  Serious: Yes (Death)
  Sender: FDA-Public Use
  Company Number: A-CH2006-11883

PATIENT
  Age: 53 Year
  Sex: Female

DRUGS (2)
  1. TRACLEER [Suspect]
     Dosage: 62.5 MG; 125 MG, BID, ORAL
     Route: 048
     Dates: start: 20010401, end: 20010501
  2. TRACLEER [Suspect]
     Dosage: 62.5 MG; 125 MG, BID, ORAL
     Route: 048
     Dates: start: 20010501, end: 20060325

REACTIONS (7)
  - ABDOMINAL PAIN [None]
  - ALANINE AMINOTRANSFERASE INCREASED [None]
  - BLOOD ALKALINE PHOSPHATASE INCREASED [None]
  - DRUG INEFFECTIVE [None]
  - HEPATOSPLENOMEGALY [None]
  - MULTI-ORGAN FAILURE [None]
  - RIGHT VENTRICULAR FAILURE [None]
